FAERS Safety Report 9921759 (Version 1)
Quarter: 2014Q1

REPORT INFORMATION
  Report Type: Spontaneous
  Country: IN (occurrence: IN)
  Receive Date: 20140225
  Receipt Date: 20140225
  Transmission Date: 20141002
  Serious: Yes (Life-Threatening)
  Sender: FDA-Public Use
  Company Number: IN-009507513-1402IND011029

PATIENT
  Age: 64 Year
  Sex: Female
  Weight: 75 kg

DRUGS (1)
  1. JANUVIA [Suspect]
     Indication: DIABETES MELLITUS
     Dosage: 1 DF (CONCENTRATION: 100MG), UNK
     Route: 048

REACTIONS (5)
  - Blood creatine increased [Not Recovered/Not Resolved]
  - Blood potassium increased [Not Recovered/Not Resolved]
  - Eye operation [Not Recovered/Not Resolved]
  - Eye disorder [Not Recovered/Not Resolved]
  - Renal disorder [Not Recovered/Not Resolved]
